FAERS Safety Report 5243867-X (Version None)
Quarter: 2007Q1

REPORT INFORMATION
  Report Type: 
  Country: None (occurrence: None)
  Receive Date: 20070220
  Receipt Date: 20070220
  Transmission Date: 20070707
  Serious: No
  Sender: FDA-Public Use
  Company Number: None

PATIENT
  Age: 66 Year
  Sex: Male
  Weight: 113.3993 kg

DRUGS (1)
  1. CIALIS [Suspect]
     Indication: ERECTILE DYSFUNCTION
     Dosage: 1 TABLET AS NEEDED PO
     Route: 048
     Dates: start: 20050417, end: 20050417

REACTIONS (1)
  - OPTIC ISCHAEMIC NEUROPATHY [None]
